FAERS Safety Report 5024440-5 (Version None)
Quarter: 2006Q2

REPORT INFORMATION
  Report Type: 
  Country: None (occurrence: None)
  Receive Date: 20060607
  Receipt Date: 20060525
  Transmission Date: 20061013
  Serious: Yes (Other)
  Sender: FDA-Public Use
  Company Number: 2006068695

PATIENT
  Sex: Female

DRUGS (2)
  1. LYRICA [Suspect]
     Indication: PAIN
     Dosage: ORAL
     Route: 048
  2. ANALGESICS [Concomitant]

REACTIONS (1)
  - MYOCARDIAL INFARCTION [None]
